FAERS Safety Report 10077261 (Version 2)
Quarter: 2014Q2

REPORT INFORMATION
  Report Type: Spontaneous
  Country: US (occurrence: US)
  Receive Date: 20140414
  Receipt Date: 20140414
  Transmission Date: 20141212
  Serious: No
  Sender: FDA-Public Use
  Company Number: US-BANPHARM-20131162

PATIENT
  Age: 44 Year
  Sex: Male
  Weight: 75.75 kg

DRUGS (3)
  1. ALEVE LIQUID GELS 220 MG [Suspect]
     Dosage: 2 DF,
     Route: 048
  2. LISINOPRIL [Concomitant]
  3. CHOLESTEROL MEDICATION [Concomitant]

REACTIONS (1)
  - Epistaxis [Recovered/Resolved]
